FAERS Safety Report 11838549 (Version 2)
Quarter: 2015Q4

REPORT INFORMATION
  Report Type: Spontaneous
  Country: None (occurrence: US)
  Receive Date: 20151215
  Receipt Date: 20151217
  Transmission Date: 20160305
  Serious: Yes (Hospitalization)
  Sender: FDA-Public Use
  Company Number: US-RARE DISEASE THERAPEUTICS, INC.-1045527

PATIENT
  Age: 19 Year
  Sex: Male
  Weight: 113.4 kg

DRUGS (1)
  1. CYSTADANE [Suspect]
     Active Substance: BETAINE
     Route: 048
     Dates: start: 20140707

REACTIONS (3)
  - Overdose [Unknown]
  - Inappropriate schedule of drug administration [Unknown]
  - Haemoptysis [Unknown]

NARRATIVE: CASE EVENT DATE: 20150713
